FAERS Safety Report 13655513 (Version 6)
Quarter: 2019Q3

REPORT INFORMATION
  Report Type: Spontaneous
  Country: US (occurrence: US)
  Receive Date: 20170615
  Receipt Date: 20190813
  Transmission Date: 20191004
  Serious: Yes (Hospitalization)
  Sender: FDA-Public Use
  Company Number: US-PFIZER INC-2017256388

PATIENT
  Age: 64 Year
  Sex: Female

DRUGS (11)
  1. IBRANCE [Suspect]
     Active Substance: PALBOCICLIB
     Dosage: UNK, CYCLIC (ON A 3 WK ON 2 WK OFF)
  2. FASLODEX [Concomitant]
     Active Substance: FULVESTRANT
     Dosage: UNK
  3. CALCIUM [Concomitant]
     Active Substance: CALCIUM
     Dosage: UNK
  4. LEXAPRO [Concomitant]
     Active Substance: ESCITALOPRAM OXALATE
     Dosage: UNK UNK, AS NEEDED
  5. IBRANCE [Suspect]
     Active Substance: PALBOCICLIB
     Dosage: 100 MG, UNK
  6. VIT D [Concomitant]
     Active Substance: VITAMIN D NOS
     Dosage: UNK
  7. BABY ASPIRIN [Concomitant]
     Active Substance: ASPIRIN
     Dosage: UNK
  8. AMLOZAAR [Concomitant]
     Dosage: UNK UNK, AS NEEDED
  9. XGEVA [Concomitant]
     Active Substance: DENOSUMAB
     Dosage: UNK
  10. CURCUMIN [Concomitant]
     Active Substance: CURCUMIN
     Dosage: UNK
  11. IBRANCE [Suspect]
     Active Substance: PALBOCICLIB
     Indication: BREAST CANCER METASTATIC
     Dosage: UNK UNK, 1X/DAY
     Dates: start: 201611

REACTIONS (11)
  - Alopecia [Unknown]
  - Arthralgia [Unknown]
  - Neutrophil count decreased [Unknown]
  - Malaise [Unknown]
  - Chills [Unknown]
  - Respiratory disorder [Recovered/Resolved]
  - Infection [Recovered/Resolved]
  - Onychoclasis [Unknown]
  - Memory impairment [Unknown]
  - Cognitive disorder [Unknown]
  - Back pain [Unknown]

NARRATIVE: CASE EVENT DATE: 201701
